FAERS Safety Report 6569266-6 (Version None)
Quarter: 2010Q1

REPORT INFORMATION
  Report Type: 
  Country: None (occurrence: None)
  Receive Date: 20100201
  Receipt Date: 20100201
  Transmission Date: 20100710
  Serious: No
  Sender: FDA-Public Use
  Company Number: None

PATIENT
  Sex: Female
  Weight: 39.4629 kg

DRUGS (1)
  1. RENAGEL [Suspect]
     Indication: RENAL FAILURE CHRONIC
     Dosage: 800 MG 3 TIMES A DAY
     Dates: start: 20090911, end: 20090914

REACTIONS (7)
  - ABDOMINAL DISCOMFORT [None]
  - BLOOD URINE PRESENT [None]
  - FEELING ABNORMAL [None]
  - HYPOPHAGIA [None]
  - MALAISE [None]
  - PRODUCT ODOUR ABNORMAL [None]
  - PRODUCT TASTE ABNORMAL [None]
